FAERS Safety Report 5803199-5 (Version None)
Quarter: 2008Q3

REPORT INFORMATION
  Report Type: 
  Country: None (occurrence: None)
  Receive Date: 20080708
  Receipt Date: 20080707
  Transmission Date: 20090109
  Serious: Yes (Hospitalization)
  Sender: FDA-Public Use
  Company Number: FR-BRISTOL-MYERS SQUIBB COMPANY-13676812

PATIENT
  Age: 87 Year
  Sex: Male

DRUGS (1)
  1. COUMADIN [Suspect]
     Indication: ISCHAEMIC STROKE
     Dosage: DOSE FORM=TABLET
     Route: 048
     Dates: end: 20061127

REACTIONS (3)
  - GLOBULINS DECREASED [None]
  - RECTAL HAEMORRHAGE [None]
  - URINARY TRACT INFECTION [None]
